FAERS Safety Report 21184335 (Version 4)
Quarter: 2022Q4

REPORT INFORMATION
  Report Type: Spontaneous
  Country: US (occurrence: US)
  Receive Date: 20220808
  Receipt Date: 20221006
  Transmission Date: 20230113
  Serious: Yes (Other)
  Sender: FDA-Public Use
  Company Number: US-ORGANON-O2208USA000498

PATIENT
  Sex: Female
  Weight: 102.04 kg

DRUGS (2)
  1. NEXPLANON [Suspect]
     Active Substance: ETONOGESTREL
     Indication: Contraception
     Dosage: 1 IMPLANT OF 68 MILLIGRAM, LEFT ARM IN THE SULCUS, DURATION OF 3 YEARS
     Route: 059
     Dates: start: 20220607
  2. NEXPLANON [Concomitant]
     Active Substance: ETONOGESTREL
     Dosage: 1 IMPLANT
     Route: 059

REACTIONS (6)
  - Neuropathy peripheral [Not Recovered/Not Resolved]
  - Agitation [Not Recovered/Not Resolved]
  - Device placement issue [Not Recovered/Not Resolved]
  - Complication associated with device [Not Recovered/Not Resolved]
  - Device kink [Not Recovered/Not Resolved]
  - Wrong technique in product usage process [Unknown]

NARRATIVE: CASE EVENT DATE: 20220101
